FAERS Safety Report 21160046 (Version 1)
Quarter: 2022Q3

REPORT INFORMATION
  Report Type: Report from Study
  Country: CA (occurrence: CA)
  Receive Date: 20220802
  Receipt Date: 20220802
  Transmission Date: 20221027
  Serious: Yes (Hospitalization, Other)
  Sender: FDA-Public Use
  Company Number: CA-ABBVIE-22K-028-4459973-00

PATIENT
  Age: 51 Year
  Sex: Female

DRUGS (2)
  1. HUMIRA [Suspect]
     Active Substance: ADALIMUMAB
     Indication: Crohn^s disease
     Route: 058
     Dates: start: 20210216
  2. HUMIRA [Suspect]
     Active Substance: ADALIMUMAB
     Route: 058

REACTIONS (16)
  - Abnormal uterine bleeding [Unknown]
  - Intestinal resection [Unknown]
  - Salpingo-oophorectomy bilateral [Unknown]
  - Uterine dilation and curettage [Unknown]
  - Colectomy [Unknown]
  - Faecal calprotectin increased [Unknown]
  - Anal spasm [Unknown]
  - Haemorrhoids [Unknown]
  - Heart rate decreased [Unknown]
  - Flatulence [Recovering/Resolving]
  - Diabetes mellitus [Unknown]
  - Flatulence [Unknown]
  - Oral candidiasis [Unknown]
  - Faeces soft [Unknown]
  - Tachycardia [Unknown]
  - Crohn^s disease [Unknown]

NARRATIVE: CASE EVENT DATE: 20211101
